FAERS Safety Report 13948421 (Version 1)
Quarter: 2017Q3

REPORT INFORMATION
  Report Type: Spontaneous
  Country: US (occurrence: None)
  Receive Date: 20170907
  Receipt Date: 20170907
  Transmission Date: 20171128
  Serious: Yes (Other)
  Sender: FDA-Public Use
  Company Number: None

PATIENT
  Age: 49 Year
  Sex: Female

DRUGS (18)
  1. CLONIDINE HCL [Concomitant]
     Active Substance: CLONIDINE HYDROCHLORIDE
  2. CLONIDINE. [Concomitant]
     Active Substance: CLONIDINE
  3. CARVEDILOL. [Concomitant]
     Active Substance: CARVEDILOL
  4. LISINOPRIL. [Concomitant]
     Active Substance: LISINOPRIL
  5. ALBUTEROL. [Concomitant]
     Active Substance: ALBUTEROL
  6. LACTULOSE. [Concomitant]
     Active Substance: LACTULOSE
  7. DIPHENHYDRAMINE. [Concomitant]
     Active Substance: DIPHENHYDRAMINE
  8. RENVELA [Concomitant]
     Active Substance: SEVELAMER CARBONATE
  9. ATIVAN [Concomitant]
     Active Substance: LORAZEPAM
  10. COMBIVENT [Concomitant]
     Active Substance: ALBUTEROL SULFATE\IPRATROPIUM BROMIDE
  11. AMLODIPINE [Concomitant]
     Active Substance: AMLODIPINE BESYLATE
  12. MEGESTROL [Concomitant]
     Active Substance: MEGESTROL
  13. OMEPRAZOLE. [Concomitant]
     Active Substance: OMEPRAZOLE
  14. MORPHINE [Concomitant]
     Active Substance: MORPHINE
  15. ADCIRCA [Concomitant]
     Active Substance: TADALAFIL
  16. LETAIRIS [Suspect]
     Active Substance: AMBRISENTAN
     Indication: PULMONARY ARTERIAL HYPERTENSION
     Route: 048
     Dates: start: 201506
  17. SENSIPAR [Concomitant]
     Active Substance: CINACALCET HYDROCHLORIDE
  18. HYDROMORPHONE [Concomitant]
     Active Substance: HYDROMORPHONE

REACTIONS (7)
  - Acute respiratory failure [None]
  - Pyrexia [None]
  - Abdominal distension [None]
  - Dyspnoea [None]
  - Pulmonary congestion [None]
  - Asthenia [None]
  - Nausea [None]

NARRATIVE: CASE EVENT DATE: 20170831
